FAERS Safety Report 12769912 (Version 3)
Quarter: 2018Q3

REPORT INFORMATION
  Report Type: Report from Study
  Country: JP (occurrence: JP)
  Receive Date: 20160922
  Receipt Date: 20180915
  Transmission Date: 20181010
  Serious: Yes (Death, Life-Threatening)
  Sender: FDA-Public Use
  Company Number: JP-AMGEN-JPNSP2016083539

PATIENT
  Age: 74 Year
  Sex: Female

DRUGS (45)
  1. ROMIPLOSTIM [Suspect]
     Active Substance: ROMIPLOSTIM
     Dosage: 1.1 MUG/KG, QD
     Route: 058
     Dates: start: 20150424, end: 20150424
  2. ROMIPLOSTIM [Suspect]
     Active Substance: ROMIPLOSTIM
     Dosage: 2.2 MUG/KG, QD
     Route: 058
     Dates: start: 20150611, end: 20150611
  3. ROMIPLOSTIM [Suspect]
     Active Substance: ROMIPLOSTIM
     Dosage: 3.3 MUG/KG, QD
     Route: 058
     Dates: start: 20160208, end: 20160208
  4. PREDONINE [Concomitant]
     Active Substance: PREDNISOLONE
     Dosage: 20 MG, UNK
     Route: 048
     Dates: start: 20160715, end: 20160721
  5. PREDONINE [Concomitant]
     Active Substance: PREDNISOLONE
     Dosage: 10 MG, UNK
     Route: 048
     Dates: start: 20160722
  6. ROMIPLOSTIM [Suspect]
     Active Substance: ROMIPLOSTIM
     Indication: IMMUNE THROMBOCYTOPENIC PURPURA
     Dosage: 1.1 MUG/KG, QD
     Route: 058
     Dates: start: 20150203, end: 20150203
  7. ROMIPLOSTIM [Suspect]
     Active Substance: ROMIPLOSTIM
     Dosage: 2.2 MUG/KG, QD
     Route: 058
     Dates: start: 20150210, end: 20150210
  8. ROMIPLOSTIM [Suspect]
     Active Substance: ROMIPLOSTIM
     Dosage: 3.3 MUG/KG, QD
     Route: 058
     Dates: start: 20150401, end: 20150401
  9. ROMIPLOSTIM [Suspect]
     Active Substance: ROMIPLOSTIM
     Dosage: 3.3 MUG/KG, QWK
     Route: 058
     Dates: start: 20150511, end: 20150601
  10. ROMIPLOSTIM [Suspect]
     Active Substance: ROMIPLOSTIM
     Dosage: 3.3 MUG/KG, QD
     Route: 058
     Dates: start: 20160128, end: 20160128
  11. ROMIPLOSTIM [Suspect]
     Active Substance: ROMIPLOSTIM
     Dosage: 3.3 MUG/KG, QD
     Route: 058
     Dates: start: 20160229, end: 20160229
  12. ROMIPLOSTIM [Suspect]
     Active Substance: ROMIPLOSTIM
     Dosage: 3.3 MUG/KG, Q2WK
     Route: 058
     Dates: start: 20160401, end: 20160425
  13. PREDONINE [Concomitant]
     Active Substance: PREDNISOLONE
     Dosage: 20 MG, UNK
     Route: 048
     Dates: start: 20150310, end: 20150317
  14. PREDONINE [Concomitant]
     Active Substance: PREDNISOLONE
     Dosage: 5 MG, UNK
     Route: 048
     Dates: start: 20150522, end: 20150526
  15. ROMIPLOSTIM [Suspect]
     Active Substance: ROMIPLOSTIM
     Dosage: 4.5 MUG/KG, QWK
     Route: 058
     Dates: start: 20150310, end: 20150325
  16. ROMIPLOSTIM [Suspect]
     Active Substance: ROMIPLOSTIM
     Dosage: 2.2 MUG/KG, QD
     Route: 058
     Dates: start: 20150702, end: 20150702
  17. ROMIPLOSTIM [Suspect]
     Active Substance: ROMIPLOSTIM
     Dosage: 2.2 MUG/KG, QD
     Route: 058
     Dates: start: 20150410, end: 20150410
  18. ROMIPLOSTIM [Suspect]
     Active Substance: ROMIPLOSTIM
     Dosage: 1.1 MUG/KG, QWK
     Route: 058
     Dates: start: 20150618, end: 20150625
  19. ROMIPLOSTIM [Suspect]
     Active Substance: ROMIPLOSTIM
     Dosage: 3.3 MUG/KG, QD
     Route: 058
     Dates: start: 20151228, end: 20151228
  20. ROMIPLOSTIM [Suspect]
     Active Substance: ROMIPLOSTIM
     Dosage: 3.3 MUG/KG, QD
     Route: 058
     Dates: start: 20160506, end: 20160506
  21. ROMIPLOSTIM [Suspect]
     Active Substance: ROMIPLOSTIM
     Dosage: 3.3 MUG/KG, QWK
     Route: 058
     Dates: start: 20160527, end: 20160617
  22. PREDONINE [Concomitant]
     Active Substance: PREDNISOLONE
     Dosage: 5 MG, UNK
     Route: 048
     Dates: start: 20150325, end: 20150331
  23. PREDONINE [Concomitant]
     Active Substance: PREDNISOLONE
     Dosage: 30 MG, UNK
     Route: 048
     Dates: start: 20160620, end: 20160714
  24. REVOLADE [Concomitant]
     Active Substance: ELTROMBOPAG
     Indication: IMMUNE THROMBOCYTOPENIC PURPURA
     Dosage: 25 MG, UNK
     Route: 048
     Dates: start: 20160621, end: 20160625
  25. ROMIPLOSTIM [Suspect]
     Active Substance: ROMIPLOSTIM
     Dosage: 3.3 MUG/KG, QD
     Route: 058
     Dates: start: 20160118, end: 20160118
  26. REVOLADE [Concomitant]
     Active Substance: ELTROMBOPAG
     Dosage: 50 MG, UNK
     Route: 048
     Dates: start: 20160626, end: 20160629
  27. ROMIPLOSTIM [Suspect]
     Active Substance: ROMIPLOSTIM
     Dosage: 3.3 MUG/KG, QD
     Route: 058
     Dates: start: 20160107, end: 20160107
  28. ADRENAL [Concomitant]
     Active Substance: EPINEPHRINE
     Dosage: UNK
     Route: 065
  29. PREDONINE [Concomitant]
     Active Substance: PREDNISOLONE
     Dosage: 30 MG, UNK
     Route: 048
     Dates: start: 20150228, end: 20150309
  30. PREDONINE [Concomitant]
     Active Substance: PREDNISOLONE
     Dosage: 30 MG, UNK
     Route: 048
     Dates: start: 20150430, end: 20150511
  31. PREDONINE [Concomitant]
     Active Substance: PREDNISOLONE
     Dosage: 10 MG, UNK
     Route: 048
     Dates: start: 20150713, end: 20150805
  32. ROMIPLOSTIM [Suspect]
     Active Substance: ROMIPLOSTIM
     Dosage: 3.3 MUG/KG, QD
     Route: 058
     Dates: start: 20150303, end: 20150303
  33. ROMIPLOSTIM [Suspect]
     Active Substance: ROMIPLOSTIM
     Dosage: 3.3 MUG/KG, QD
     Route: 058
     Dates: start: 20150430, end: 20150430
  34. ROMIPLOSTIM [Suspect]
     Active Substance: ROMIPLOSTIM
     Dosage: 3.3 MUG/KG, QWK
     Route: 058
     Dates: start: 20150709, end: 20151217
  35. ROMIPLOSTIM [Suspect]
     Active Substance: ROMIPLOSTIM
     Dosage: 3.3 MUG/KG, QD
     Route: 058
     Dates: start: 20160218, end: 20160218
  36. ROMIPLOSTIM [Suspect]
     Active Substance: ROMIPLOSTIM
     Dosage: 4.8 MUG/KG, QWK
     Route: 058
     Dates: start: 20160629, end: 20160708
  37. PREDONINE [Concomitant]
     Active Substance: PREDNISOLONE
     Dosage: 5 MG, UNK
     Route: 048
     Dates: start: 20150217, end: 20150227
  38. PREDONINE [Concomitant]
     Active Substance: PREDNISOLONE
     Dosage: 10 MG, UNK
     Route: 048
     Dates: start: 20150318, end: 20150324
  39. PREDONINE [Concomitant]
     Active Substance: PREDNISOLONE
     Dosage: 20 MG, UNK
     Route: 048
     Dates: start: 20150512, end: 20150516
  40. ROMIPLOSTIM [Suspect]
     Active Substance: ROMIPLOSTIM
     Dosage: 3.3 MUG/KG, Q2WK
     Route: 058
     Dates: start: 20160310, end: 20160322
  41. ROMIPLOSTIM [Suspect]
     Active Substance: ROMIPLOSTIM
     Dosage: 3.3 MUG/KG, QD
     Route: 058
     Dates: start: 20160516, end: 20160516
  42. ROMIPLOSTIM [Suspect]
     Active Substance: ROMIPLOSTIM
     Dosage: 3.3 MUG/KG, QWK
     Route: 058
     Dates: start: 20160715
  43. PREDONINE [Concomitant]
     Active Substance: PREDNISOLONE
     Indication: IMMUNE THROMBOCYTOPENIC PURPURA
     Dosage: 10 MG, UNK
     Route: 048
     Dates: start: 20150203, end: 20150216
  44. PREDONINE [Concomitant]
     Active Substance: PREDNISOLONE
     Dosage: 10 MG, UNK
     Route: 048
     Dates: start: 20150517, end: 20150521
  45. PREDONINE [Concomitant]
     Active Substance: PREDNISOLONE
     Dosage: 5 MG, UNK
     Route: 048
     Dates: start: 20150806, end: 20160619

REACTIONS (5)
  - Disseminated intravascular coagulation [Recovering/Resolving]
  - Therapeutic response decreased [Unknown]
  - Cardiac failure [Unknown]
  - Platelet count decreased [Recovering/Resolving]
  - Death [Fatal]

NARRATIVE: CASE EVENT DATE: 20160620
